FAERS Safety Report 5400188-X (Version None)
Quarter: 2007Q3

REPORT INFORMATION
  Report Type: 
  Country: None (occurrence: None)
  Receive Date: 20070727
  Receipt Date: 20070727
  Transmission Date: 20080115
  Serious: Yes (Hospitalization)
  Sender: FDA-Public Use
  Company Number: None

PATIENT
  Sex: Female
  Weight: 80 kg

DRUGS (2)
  1. CARBOPLATIN [Suspect]
     Dosage: 489 MG
  2. TAXOL [Suspect]
     Dosage: 335 MG

REACTIONS (2)
  - NEUTROPHIL COUNT DECREASED [None]
  - VAGINAL INFECTION [None]
